FAERS Safety Report 4389969-1 (Version None)
Quarter: 2004Q2

REPORT INFORMATION
  Report Type: 
  Country: None (occurrence: None)
  Receive Date: 20040630
  Receipt Date: 20040614
  Transmission Date: 20050107
  Serious: Yes (Hospitalization)
  Sender: FDA-Public Use
  Company Number: 207411

PATIENT
  Age: 39 Year
  Sex: Female

DRUGS (9)
  1. HERCEPTIN [Suspect]
     Indication: BREAST CANCER
     Dosage: SEE IMAGE
     Route: 042
     Dates: start: 20040421, end: 20040421
  2. HERCEPTIN [Suspect]
     Indication: BREAST CANCER
     Dosage: SEE IMAGE
     Route: 042
     Dates: start: 20040430
  3. DOCETAXEL(DOCETAXEL) [Suspect]
     Indication: BREAST CANCER
     Dosage: 125 MG, Q3W, INTRAVENOUS
     Route: 042
     Dates: start: 20040422
  4. CARBOPLATIN [Suspect]
     Indication: BREAST CANCER
     Dosage: 804 MG, Q3W, INTRAVENOUS
     Route: 042
     Dates: start: 20040422
  5. FLUCONAZOLE [Concomitant]
  6. PARIET (RABEPRAZOLE) [Concomitant]
  7. SEROPRAM (CITALOPRAM) [Concomitant]
  8. XANAX [Concomitant]
  9. GLUCOSE (GLUCOSE) [Concomitant]

REACTIONS (6)
  - ABDOMINAL PAIN [None]
  - ANXIETY [None]
  - ASTHENIA [None]
  - DYSPNOEA [None]
  - EJECTION FRACTION DECREASED [None]
  - TREMOR [None]
